FAERS Safety Report 19075924 (Version 1)
Quarter: 2021Q1

REPORT INFORMATION
  Report Type: Spontaneous
  Country: CZ (occurrence: CZ)
  Receive Date: 20210330
  Receipt Date: 20210330
  Transmission Date: 20210420
  Serious: Yes (Hospitalization, Other)
  Sender: FDA-Public Use
  Company Number: CZ-GILEAD-2021-0523202

PATIENT
  Age: 45 Year
  Sex: Male
  Weight: 105 kg

DRUGS (4)
  1. CEFTRIAXONE. [Concomitant]
     Active Substance: CEFTRIAXONE
     Dosage: UNK
     Dates: start: 20210304, end: 20210306
  2. VEKLURY [Suspect]
     Active Substance: REMDESIVIR
     Indication: COVID-19 PNEUMONIA
     Dosage: 200MG I.V. IN 250ML F1/1 / FIRST DOSE, APLIED 1/2 TILL DISCONTINUATION
     Route: 042
     Dates: start: 20210306, end: 20210306
  3. CLEXANE [Concomitant]
     Active Substance: ENOXAPARIN SODIUM
     Dosage: UNK
     Route: 058
     Dates: start: 20210304, end: 20210306
  4. TIAPRIDAL [Suspect]
     Active Substance: TIAPRIDE HYDROCHLORIDE
     Indication: DELIRIUM
     Dosage: 200 MG TOTAL
     Route: 042
     Dates: start: 20210306, end: 20210306

REACTIONS (4)
  - Psychomotor hyperactivity [Recovered/Resolved]
  - Delirium [Recovered/Resolved]
  - Hallucination [Recovered/Resolved]
  - Loss of consciousness [Recovered/Resolved]

NARRATIVE: CASE EVENT DATE: 20210306
